FAERS Safety Report 7158336-X (Version None)
Quarter: 2010Q4

REPORT INFORMATION
  Report Type: 
  Country: None (occurrence: None)
  Receive Date: 20101214
  Receipt Date: 20100715
  Transmission Date: 20110411
  Serious: Yes (Other)
  Sender: FDA-Public Use
  Company Number: US-PFIZER INC-2010066628

PATIENT
  Sex: Female
  Weight: 55.8 kg

DRUGS (1)
  1. ARTHROTEC [Suspect]
     Dosage: 75MG/200MCG
     Dates: start: 20100501, end: 20100501

REACTIONS (1)
  - DELUSIONAL PERCEPTION [None]
